FAERS Safety Report 6728262-6 (Version None)
Quarter: 2010Q2

REPORT INFORMATION
  Report Type: 
  Country: None (occurrence: None)
  Receive Date: 20100517
  Receipt Date: 20100507
  Transmission Date: 20101027
  Serious: Yes (Other)
  Sender: FDA-Public Use
  Company Number: CHPA2010US08047

PATIENT
  Age: 80 Year
  Sex: Female

DRUGS (2)
  1. BENEFIBER SUGAR FREE (NCH) [Suspect]
     Indication: NUTRITIONAL SUPPORT
     Dosage: UNK, UNK
     Route: 048
  2. BENEFIBER UNKNOWN (NCH) [Suspect]
     Indication: NUTRITIONAL SUPPORT
     Dosage: UNK, UNK
     Route: 048

REACTIONS (1)
  - MYOCARDIAL INFARCTION [None]
